FAERS Safety Report 8187996-X (Version None)
Quarter: 2012Q1

REPORT INFORMATION
  Report Type: 
  Country: None (occurrence: None)
  Receive Date: 20120306
  Receipt Date: 20120301
  Transmission Date: 20120608
  Serious: Yes (Hospitalization)
  Sender: FDA-Public Use
  Company Number: DE-ABBOTT-12P-062-0910347-00

PATIENT
  Sex: Male

DRUGS (2)
  1. ANALGESIC NOT SPECIFIED [Concomitant]
     Indication: PRODUCT USED FOR UNKNOWN INDICATION
  2. HUMIRA [Suspect]
     Indication: PSORIATIC ARTHROPATHY
     Route: 058
     Dates: start: 20090101, end: 20120101

REACTIONS (2)
  - URETHRAL STENOSIS [None]
  - DRUG INEFFECTIVE [None]
